FAERS Safety Report 9223995 (Version 1)
Quarter: 2013Q2

REPORT INFORMATION
  Report Type: Spontaneous
  Country: US (occurrence: US)
  Receive Date: 20130411
  Receipt Date: 20130411
  Transmission Date: 20140414
  Serious: No
  Sender: FDA-Public Use
  Company Number: US-BIOGENIDEC-2013BI031193

PATIENT
  Sex: Female

DRUGS (4)
  1. TYSABRI [Suspect]
     Indication: MULTIPLE SCLEROSIS
     Route: 042
     Dates: start: 20101202
  2. CALCIPOTRIENE [Concomitant]
     Indication: PSORIASIS
     Route: 061
  3. CLOBETASOL OINTMENT [Concomitant]
     Indication: PSORIASIS
     Route: 061
  4. DOVONEX LOTION [Concomitant]
     Indication: PSORIASIS

REACTIONS (6)
  - Gait disturbance [Not Recovered/Not Resolved]
  - Fatigue [Not Recovered/Not Resolved]
  - Migraine with aura [Recovered/Resolved]
  - Migraine [Recovered/Resolved]
  - Cough [Recovered/Resolved]
  - Wheezing [Recovered/Resolved]
